FAERS Safety Report 10048011 (Version 1)
Quarter: 2014Q1

REPORT INFORMATION
  Report Type: Spontaneous
  Country: GB (occurrence: GB)
  Receive Date: 20140331
  Receipt Date: 20140331
  Transmission Date: 20141002
  Serious: Yes (Other)
  Sender: FDA-Public Use
  Company Number: PHHY2014GB034631

PATIENT
  Age: 4 Year
  Sex: Female

DRUGS (5)
  1. SUMATRIPTAN [Suspect]
  2. LEVOTHYROXINE [Concomitant]
  3. OMEPRAZOLE [Concomitant]
  4. PROPRANOLOL [Concomitant]
  5. TEGRETOL [Concomitant]

REACTIONS (1)
  - Acute coronary syndrome [Recovered/Resolved with Sequelae]
